FAERS Safety Report 8822712 (Version 1)
Quarter: 2012Q4

REPORT INFORMATION
  Report Type: 
  Country: US (occurrence: US)
  Receive Date: 20121003
  Receipt Date: 20121003
  Transmission Date: 20130627
  Serious: Yes (Other)
  Sender: FDA-Public Use
  Company Number: US-ROCHE-1130964

PATIENT
  Sex: Female

DRUGS (5)
  1. RITUXAN [Suspect]
     Indication: THROMBOCYTOPENIA
     Route: 065
     Dates: start: 200505
  2. RITUXAN [Suspect]
     Indication: OFF LABEL USE
     Route: 065
     Dates: start: 20060113
  3. PULSE STEROIDS (UNK INGREDIENTS) [Concomitant]
     Route: 065
  4. IMMUNOGLOBULIN IV [Concomitant]
  5. AZATHIOPRINE [Concomitant]

REACTIONS (2)
  - Rheumatoid arthritis [Unknown]
  - Autoimmune thrombocytopenia [Unknown]
